FAERS Safety Report 15064075 (Version 1)
Quarter: 2018Q2

REPORT INFORMATION
  Report Type: Spontaneous
  Country: US (occurrence: US)
  Receive Date: 20180625
  Receipt Date: 20180625
  Transmission Date: 20180711
  Serious: No
  Sender: FDA-Public Use
  Company Number: US-AMGEN-USASP2016059034

PATIENT
  Age: 72 Year
  Sex: Female

DRUGS (2)
  1. REPATHA [Suspect]
     Active Substance: EVOLOCUMAB
     Indication: LOW DENSITY LIPOPROTEIN INCREASED
     Dosage: 140 MG, Q2WK
     Route: 065
     Dates: start: 201601
  2. TRILIPIX [Concomitant]
     Active Substance: FENOFIBRIC ACID

REACTIONS (5)
  - Muscle spasms [Unknown]
  - Blood creatine phosphokinase abnormal [Unknown]
  - Sciatica [Unknown]
  - Myalgia [Unknown]
  - Back pain [Unknown]
